FAERS Safety Report 5687180-5 (Version None)
Quarter: 2008Q1

REPORT INFORMATION
  Report Type: 
  Country: None (occurrence: None)
  Receive Date: 20080328
  Receipt Date: 20070119
  Transmission Date: 20080703
  Serious: No
  Sender: FDA-Public Use
  Company Number: US-BAYER-US-2006-036334

PATIENT
  Age: 49 Year
  Sex: Female
  Weight: 65 kg

DRUGS (2)
  1. MIRENA [Suspect]
     Indication: MENORRHAGIA
     Route: 015
     Dates: start: 20061002
  2. HERBAL PREPARATION [Concomitant]

REACTIONS (3)
  - BACK PAIN [None]
  - DYSPNOEA EXERTIONAL [None]
  - MENSTRUATION DELAYED [None]
